FAERS Safety Report 7078157-6 (Version None)
Quarter: 2010Q4

REPORT INFORMATION
  Report Type: 
  Country: None (occurrence: None)
  Receive Date: 20101102
  Receipt Date: 20101026
  Transmission Date: 20110411
  Serious: Yes (Death)
  Sender: FDA-Public Use
  Company Number: RO-TEVA-253410ISR

PATIENT
  Sex: Male

DRUGS (4)
  1. COPAXONE [Suspect]
     Indication: RELAPSING-REMITTING MULTIPLE SCLEROSIS
     Route: 058
     Dates: start: 20040101, end: 20101001
  2. VALPROIC ACID [Concomitant]
     Indication: DEPRESSION
  3. ESCITALOPRAM OXALATE [Concomitant]
     Indication: DEPRESSION
     Route: 048
  4. ALPRAZOLAM [Concomitant]
     Indication: DEPRESSION
     Route: 048

REACTIONS (1)
  - COMPLETED SUICIDE [None]
